FAERS Safety Report 14166353 (Version 1)
Quarter: 2017Q4

REPORT INFORMATION
  Report Type: Spontaneous
  Country: US (occurrence: US)
  Receive Date: 20171107
  Receipt Date: 20171107
  Transmission Date: 20180321
  Serious: No
  Sender: FDA-Public Use
  Company Number: US-MISSION PHARMACAL COMPANY-2033410

PATIENT
  Age: 68 Year
  Sex: Male

DRUGS (1)
  1. THIOLA [Suspect]
     Active Substance: TIOPRONIN
     Indication: CYSTINURIA
     Route: 065
     Dates: start: 20170927

REACTIONS (10)
  - Hypertension [Recovering/Resolving]
  - Nephrotic syndrome [Unknown]
  - Peripheral swelling [Recovering/Resolving]
  - Drug dose omission [Unknown]
  - Headache [Recovering/Resolving]
  - Proteinuria [Unknown]
  - Neoplasm malignant [Unknown]
  - Depression [Recovering/Resolving]
  - Muscle twitching [Recovering/Resolving]
  - Weight increased [Recovering/Resolving]

NARRATIVE: CASE EVENT DATE: 20171023
